FAERS Safety Report 12449653 (Version 1)
Quarter: 2016Q2

REPORT INFORMATION
  Report Type: Spontaneous
  Country: US (occurrence: US)
  Receive Date: 20160609
  Receipt Date: 20160609
  Transmission Date: 20160815
  Serious: No
  Sender: FDA-Public Use
  Company Number: US-ACCORD-037854

PATIENT
  Sex: Male

DRUGS (1)
  1. MITOMYCIN. [Suspect]
     Active Substance: MITOMYCIN
     Indication: PRODUCT USED FOR UNKNOWN INDICATION
     Dosage: INFUSION
     Dates: start: 20150827

REACTIONS (2)
  - Accidental exposure to product [Recovered/Resolved]
  - Exposure via direct contact [Recovered/Resolved]

NARRATIVE: CASE EVENT DATE: 20150827
